FAERS Safety Report 25063111 (Version 2)
Quarter: 2025Q1

REPORT INFORMATION
  Report Type: Spontaneous
  Country: US (occurrence: US)
  Receive Date: 20250311
  Receipt Date: 20250325
  Transmission Date: 20250409
  Serious: No
  Sender: ROCHE
  Company Number: US-ROCHE-10000227295

PATIENT
  Sex: Male

DRUGS (9)
  1. ERIVEDGE [Suspect]
     Active Substance: VISMODEGIB
     Indication: Basal cell carcinoma
     Route: 048
     Dates: start: 20250218
  2. ATORVASTATIN [Concomitant]
     Active Substance: ATORVASTATIN
  3. , ELIQUIS TAB 5 MG [Concomitant]
  4. ISOSORBIDE M TB2 30MG [Concomitant]
  5. LISINOPRIL [Concomitant]
     Active Substance: LISINOPRIL
  6. METFORMIN HC TAB 1000MG [Concomitant]
  7. VITAMIN B12 LIQ 3000MCG/M [Concomitant]
  8. VITAMIN E LIQ [Concomitant]
  9. vitamin c tab 1000mg [Concomitant]

REACTIONS (2)
  - Muscle spasms [Not Recovered/Not Resolved]
  - Constipation [Unknown]
